FAERS Safety Report 10098042 (Version 1)
Quarter: 2014Q2

REPORT INFORMATION
  Report Type: Spontaneous
  Country: US (occurrence: US)
  Receive Date: 20140423
  Receipt Date: 20140423
  Transmission Date: 20141212
  Serious: Yes (Hospitalization, Other)
  Sender: FDA-Public Use
  Company Number: US-AMGEN-USASP2014028914

PATIENT
  Age: 52 Year
  Sex: Male

DRUGS (1)
  1. ENBREL [Suspect]
     Indication: PSORIATIC ARTHROPATHY
     Dosage: 50 MG, QWK
     Route: 065
     Dates: start: 20080926

REACTIONS (4)
  - Dyspepsia [Recovered/Resolved]
  - Coronary artery occlusion [Recovered/Resolved]
  - Myocardial necrosis marker increased [Recovered/Resolved]
  - Joint stiffness [Recovered/Resolved]
